FAERS Safety Report 19483137 (Version 1)
Quarter: 2021Q3

REPORT INFORMATION
  Report Type: Spontaneous
  Country: JP (occurrence: JP)
  Receive Date: 20210701
  Receipt Date: 20210701
  Transmission Date: 20211014
  Serious: No
  Sender: FDA-Public Use
  Company Number: JP-LUPIN PHARMACEUTICALS INC.-2021-10520

PATIENT
  Age: 33 Year
  Sex: Female

DRUGS (2)
  1. BETAMETHASONE. [Suspect]
     Active Substance: BETAMETHASONE
     Indication: MASS
     Dosage: 12 MILLIGRAM (TWO 12?MG DOSES)
     Route: 030
  2. BETAMETHASONE. [Suspect]
     Active Substance: BETAMETHASONE
     Indication: CYST

REACTIONS (1)
  - Exposure during pregnancy [Unknown]
